FAERS Safety Report 8330316-8 (Version None)
Quarter: 2012Q2

REPORT INFORMATION
  Report Type: 
  Country: None (occurrence: None)
  Receive Date: 20120502
  Receipt Date: 20120423
  Transmission Date: 20120825
  Serious: Yes (Hospitalization, Other)
  Sender: FDA-Public Use
  Company Number: US-ACTELION-A-US2012-63246

PATIENT

DRUGS (2)
  1. CALCIUM CHANNEL BLOCKERS [Concomitant]
  2. TRACLEER [Suspect]
     Indication: PULMONARY ARTERIAL HYPERTENSION
     Dosage: UNK
     Route: 048
     Dates: start: 20111004

REACTIONS (6)
  - WHEEZING [None]
  - INSOMNIA [None]
  - PRODUCTIVE COUGH [None]
  - DYSPNOEA [None]
  - CONVULSION [None]
  - LUNG INFECTION [None]
